FAERS Safety Report 15676235 (Version 3)
Quarter: 2020Q3

REPORT INFORMATION
  Report Type: Spontaneous
  Country: US (occurrence: US)
  Receive Date: 20181130
  Receipt Date: 20200922
  Transmission Date: 20201102
  Serious: Yes (Hospitalization, Other)
  Sender: FDA-Public Use
  Company Number: US-BRISTOL-MYERS SQUIBB COMPANY-BMS-2018-110621

PATIENT
  Age: 76 Year
  Sex: Male
  Weight: 105.2 kg

DRUGS (8)
  1. LASIX [Suspect]
     Active Substance: FUROSEMIDE
     Dosage: 40 MG, QD
     Route: 048
     Dates: start: 20180910
  2. LASIX [Suspect]
     Active Substance: FUROSEMIDE
     Indication: POLYURIA
     Dosage: 160 MG, QD
     Route: 048
     Dates: start: 20180815, end: 20180910
  3. DEMADEX [Concomitant]
     Active Substance: TORSEMIDE
     Indication: POLYURIA
     Dosage: 30 MILLIGRAM, QD
     Route: 048
     Dates: start: 20181114
  4. EMPAGLIFLOZIN [Suspect]
     Active Substance: EMPAGLIFLOZIN
     Indication: CARDIAC FAILURE CHRONIC
     Dosage: UNK
     Route: 048
     Dates: start: 20180202, end: 20180504
  5. AMIODARONE [Suspect]
     Active Substance: AMIODARONE
     Indication: ARRHYTHMIA
     Dosage: 400 MG, QD
     Route: 048
     Dates: start: 20180821, end: 20180910
  6. COUMADIN [Suspect]
     Active Substance: WARFARIN SODIUM
     Indication: ATRIAL FIBRILLATION
     Dosage: 1 UNK, UNK
     Route: 048
     Dates: end: 20180322
  7. INSULIN [Suspect]
     Active Substance: INSULIN NOS
     Indication: DIABETES MELLITUS
     Dosage: 45 IU, QD
     Route: 058
     Dates: start: 20180412
  8. COUMADIN [Suspect]
     Active Substance: WARFARIN SODIUM
     Dosage: UNK
     Route: 048
     Dates: start: 20180515

REACTIONS (7)
  - Diabetes mellitus [Recovered/Resolved]
  - Hypovolaemia [Recovered/Resolved]
  - Giant cell arteritis [Recovered/Resolved with Sequelae]
  - Acute kidney injury [Recovered/Resolved]
  - Peripheral ischaemia [Recovered/Resolved]
  - Polyuria [Recovered/Resolved]
  - Splenic infarction [Recovered/Resolved]

NARRATIVE: CASE EVENT DATE: 20180430
